FAERS Safety Report 9122533 (Version 1)
Quarter: 2013Q1

REPORT INFORMATION
  Report Type: Spontaneous
  Country: US (occurrence: None)
  Receive Date: 20130131
  Receipt Date: 20130131
  Transmission Date: 20140127
  Serious: Yes (Death)
  Sender: FDA-Public Use
  Company Number: JPI-P-029275

PATIENT
  Age: 31 Year
  Sex: Female

DRUGS (1)
  1. XYREM (500 MILLIGRAM/MILLILITERS, SOLUTION) (SODIUM OXYBATE) [Suspect]
     Indication: SLEEP DISORDER
     Dosage: 6 GM  (3 GM,  2 IN 1 D), ORAL?03/03/2011  -
     Route: 048
     Dates: start: 20110303

REACTIONS (8)
  - Ulcer [None]
  - Initial insomnia [None]
  - Drug ineffective [None]
  - Bronchitis [None]
  - Nasopharyngitis [None]
  - Meniere^s disease [None]
  - Multiple allergies [None]
  - Vomiting [None]
